FAERS Safety Report 24307288 (Version 2)
Quarter: 2024Q4

REPORT INFORMATION
  Report Type: Spontaneous
  Country: US (occurrence: US)
  Receive Date: 20240911
  Receipt Date: 20241108
  Transmission Date: 20250115
  Serious: Yes (Hospitalization)
  Sender: INTRA-CELLULAR THERAPIES
  Company Number: US-INTRA-CELLULAR THERAPIES, INC.-2024ICT01413

PATIENT
  Age: 52 Year
  Sex: Male

DRUGS (2)
  1. CAPLYTA [Suspect]
     Active Substance: LUMATEPERONE
     Indication: Bipolar disorder
     Dosage: UNK
     Dates: start: 2024
  2. LITHIUM [Suspect]
     Active Substance: LITHIUM
     Indication: Bipolar disorder
     Route: 065

REACTIONS (1)
  - Hypomania [Not Recovered/Not Resolved]

NARRATIVE: CASE EVENT DATE: 20240101
